FAERS Safety Report 13737934 (Version 2)
Quarter: 2017Q3

REPORT INFORMATION
  Report Type: Spontaneous
  Country: US (occurrence: US)
  Receive Date: 20170710
  Receipt Date: 20170901
  Transmission Date: 20171127
  Serious: No
  Sender: FDA-Public Use
  Company Number: US-ASTRAZENECA-2017SE71014

PATIENT
  Age: 67 Year
  Sex: Female
  Weight: 72.6 kg

DRUGS (2)
  1. SYMBICORT [Suspect]
     Active Substance: BUDESONIDE\FORMOTEROL FUMARATE DIHYDRATE
     Indication: CHRONIC OBSTRUCTIVE PULMONARY DISEASE
     Dosage: 160/4.5 MCG, 2 PUFFS TWICE PER DAY
     Route: 055
     Dates: start: 2012
  2. SYMBICORT [Suspect]
     Active Substance: BUDESONIDE\FORMOTEROL FUMARATE DIHYDRATE
     Indication: ASTHMA
     Dosage: 160/4.5 MCG, 2 PUFFS TWICE PER DAY
     Route: 055
     Dates: start: 2012

REACTIONS (6)
  - Drug dose omission [Unknown]
  - Dyspnoea [Unknown]
  - Visual acuity reduced [Unknown]
  - Wrong technique in product usage process [Unknown]
  - Hypoaesthesia [Unknown]
  - Device malfunction [Unknown]

NARRATIVE: CASE EVENT DATE: 2012
